FAERS Safety Report 4602978-X (Version None)
Quarter: 2005Q1

REPORT INFORMATION
  Report Type: 
  Country: None (occurrence: None)
  Receive Date: 20050309
  Receipt Date: 20020516
  Transmission Date: 20050727
  Serious: Yes (Hospitalization)
  Sender: FDA-Public Use
  Company Number: PHFR2002IE01691

PATIENT
  Age: 44 Year
  Sex: Male

DRUGS (3)
  1. CLOZARIL [Suspect]
     Indication: SCHIZOPHRENIA
     Dosage: 650MG/DAY
     Route: 048
     Dates: start: 19950503
  2. ASPIRIN [Suspect]
     Route: 048
  3. ANDREWS LIVER SALT [Suspect]

REACTIONS (7)
  - BLOOD FOLATE DECREASED [None]
  - GASTROINTESTINAL HAEMORRHAGE [None]
  - HAEMOGLOBIN DECREASED [None]
  - HAEMORRHOIDS [None]
  - HYPOCHROMIC ANAEMIA [None]
  - SERUM FERRITIN DECREASED [None]
  - VITAMIN B12 DECREASED [None]
